FAERS Safety Report 6429520-5 (Version None)
Quarter: 2009Q4

REPORT INFORMATION
  Report Type: 
  Country: None (occurrence: None)
  Receive Date: 20091102
  Receipt Date: 20091026
  Transmission Date: 20100525
  Serious: Yes (Other)
  Sender: FDA-Public Use
  Company Number: 09US004638

PATIENT
  Age: 20 Year
  Sex: Male
  Weight: 61.2 kg

DRUGS (1)
  1. IBUPROFEN 200MG-DIPHENHYDRAMINE CITRATE 38 MG 050(IBUPROFEN 200 MG, DI [Suspect]
     Indication: DRUG USE FOR UNKNOWN INDICATION
     Dosage: 3 TABLETS WITHIN 6 HOURS, ORAL
     Route: 048
     Dates: start: 20091023, end: 20091024

REACTIONS (6)
  - CONVULSION [None]
  - DRUG ADMINISTRATION ERROR [None]
  - DRUG INEFFECTIVE [None]
  - INCORRECT DOSE ADMINISTERED [None]
  - INSOMNIA [None]
  - STRESS [None]
